FAERS Safety Report 15320680 (Version 1)
Quarter: 2018Q3

REPORT INFORMATION
  Report Type: Spontaneous
  Country: ES (occurrence: ES)
  Receive Date: 20180827
  Receipt Date: 20180827
  Transmission Date: 20181010
  Serious: Yes (Life-Threatening, Hospitalization)
  Sender: FDA-Public Use
  Company Number: PHHY2018ES083015

PATIENT
  Age: 36 Year
  Sex: Male

DRUGS (3)
  1. DAPSONA [Suspect]
     Active Substance: DAPSONE
     Indication: PROPHYLAXIS
     Dosage: 200 MG, QD
     Route: 048
     Dates: start: 20180202, end: 20180213
  2. PIRIMETAMINA [Concomitant]
     Active Substance: PYRIMETHAMINE
     Indication: PROPHYLAXIS
     Dosage: 75 MG, QD
     Route: 048
     Dates: start: 20180202, end: 20180215
  3. AMOXICILLIN, CLAVULANATE [Suspect]
     Active Substance: AMOXICILLIN\CLAVULANATE POTASSIUM
     Indication: FEBRILE NEUTROPENIA
     Dosage: 1 DF, Q8H (1 UG/LITRE)
     Route: 042
     Dates: start: 20180205, end: 20180207

REACTIONS (2)
  - Coombs positive haemolytic anaemia [Recovered/Resolved]
  - Methaemoglobinaemia [Recovered/Resolved]

NARRATIVE: CASE EVENT DATE: 20180205
